FAERS Safety Report 9364445 (Version 2)
Quarter: 2013Q4

REPORT INFORMATION
  Report Type: Spontaneous
  Country: FR (occurrence: FR)
  Receive Date: 20130624
  Receipt Date: 20131119
  Transmission Date: 20140711
  Serious: Yes (Life-Threatening, Hospitalization)
  Sender: FDA-Public Use
  Company Number: FR-ASTRAZENECA-2013SE47900

PATIENT
  Age: 12100 Day
  Sex: Male
  Weight: 87 kg

DRUGS (6)
  1. XEROQUEL [Suspect]
     Indication: MANIA
     Route: 048
     Dates: start: 20130521, end: 20130602
  2. DEPAKOTE [Suspect]
     Indication: MANIA
     Route: 048
     Dates: start: 20130509, end: 20130602
  3. LARGACTIL [Suspect]
     Indication: MANIA
     Route: 048
     Dates: start: 20130509, end: 20130602
  4. TERALITHE [Suspect]
     Indication: MANIA
     Route: 048
     Dates: start: 20130521, end: 20130602
  5. LEPTICUR [Suspect]
     Indication: EXTRAPYRAMIDAL DISORDER
     Route: 048
     Dates: start: 20130514, end: 20130602
  6. PSYCHOTROPIC DRUGS [Concomitant]

REACTIONS (3)
  - Septic shock [Not Recovered/Not Resolved]
  - Multi-organ failure [Not Recovered/Not Resolved]
  - Intestinal obstruction [Not Recovered/Not Resolved]
